FAERS Safety Report 7399263-2 (Version None)
Quarter: 2011Q2

REPORT INFORMATION
  Report Type: 
  Country: None (occurrence: None)
  Receive Date: 20110407
  Receipt Date: 20110328
  Transmission Date: 20111010
  Serious: Yes (Hospitalization)
  Sender: FDA-Public Use
  Company Number: GB-KINGPHARMUSA00001-K201100357

PATIENT
  Sex: Female

DRUGS (3)
  1. NAPROXEN [Concomitant]
     Dosage: 250 MG, UNK
     Dates: start: 20090209, end: 20090211
  2. OMEPRAZOLE [Concomitant]
     Dosage: 500 MG, UNK
  3. AVINZA [Suspect]
     Indication: BACK PAIN
     Dosage: 10 MG, QD
     Dates: start: 20090211, end: 20090220

REACTIONS (1)
  - ACUTE GENERALISED EXANTHEMATOUS PUSTULOSIS [None]
